FAERS Safety Report 13393481 (Version 1)
Quarter: 2017Q1

REPORT INFORMATION
  Report Type: Spontaneous
  Country: US (occurrence: US)
  Receive Date: 20170331
  Receipt Date: 20170331
  Transmission Date: 20170429
  Serious: No
  Sender: FDA-Public Use
  Company Number: US-SEPTODONT-201603664

PATIENT

DRUGS (2)
  1. BENZOCAINE. [Concomitant]
     Active Substance: BENZOCAINE
     Route: 061
  2. LIDOCAINE HYDROCHLORIDE 2% WITH EPINEPHRINE 1:100,000 INJECTION [Suspect]
     Active Substance: EPINEPHRINE\LIDOCAINE HYDROCHLORIDE
     Indication: LOCAL ANAESTHESIA
     Dosage: VARIED FROM ONE TO SEVERAL CARPULES. ?INFILTRATION, NERVE BLOCK AND INTRALIGAMENTAL
     Route: 004
     Dates: start: 20160929, end: 20160929

REACTIONS (2)
  - Drug ineffective [Recovered/Resolved]
  - Injection site discomfort [Recovered/Resolved]

NARRATIVE: CASE EVENT DATE: 20160929
